FAERS Safety Report 24126132 (Version 2)
Quarter: 2024Q4

REPORT INFORMATION
  Report Type: Report from Study
  Country: US (occurrence: US)
  Receive Date: 20240723
  Receipt Date: 20241111
  Transmission Date: 20250115
  Serious: Yes (Hospitalization, Other)
  Sender: IPSEN BIOPHARMACEUTICALS, INC.
  Company Number: US-IPSEN Group, Research and Development-2024-14208

PATIENT
  Age: 82 Year
  Sex: Male
  Weight: 66.2 kg

DRUGS (4)
  1. TAZEMETOSTAT [Suspect]
     Active Substance: TAZEMETOSTAT
     Indication: Prostate cancer
     Dosage: PO, FREQUENCY: TWICE A DAY
     Route: 048
     Dates: start: 20231206
  2. TALAZOPARIB [Suspect]
     Active Substance: TALAZOPARIB
     Indication: Prostate cancer
     Route: 048
     Dates: start: 20231206
  3. ELIQUIS [Concomitant]
     Active Substance: APIXABAN
     Indication: Prophylaxis
     Dosage: ON HOLD
  4. FENTANYL [Concomitant]
     Active Substance: FENTANYL
     Route: 042

REACTIONS (3)
  - Urinary retention [Unknown]
  - Haematuria [Unknown]
  - Troponin T increased [Unknown]

NARRATIVE: CASE EVENT DATE: 20240701
